FAERS Safety Report 4434453-X (Version None)
Quarter: 2004Q3

REPORT INFORMATION
  Report Type: 
  Country: None (occurrence: None)
  Receive Date: 20040726
  Receipt Date: 20040319
  Transmission Date: 20050211
  Serious: No
  Sender: FDA-Public Use
  Company Number: USA040259450

PATIENT
  Age: 77 Year
  Sex: Female
  Weight: 59 kg

DRUGS (3)
  1. FORTEO [Suspect]
     Indication: OSTEOPOROSIS
     Dosage: 20 UG
     Dates: start: 20040202
  2. EVISTA [Suspect]
     Dates: start: 19990101
  3. CALTRATE + D [Concomitant]

REACTIONS (4)
  - DECREASED APPETITE [None]
  - MUSCLE CRAMP [None]
  - NAUSEA [None]
  - STOMACH DISCOMFORT [None]
